FAERS Safety Report 8616111-0 (Version None)
Quarter: 2012Q3

REPORT INFORMATION
  Report Type: 
  Country: None (occurrence: None)
  Receive Date: 20120823
  Receipt Date: 20120815
  Transmission Date: 20120928
  Serious: Yes (Other)
  Sender: FDA-Public Use
  Company Number: JP-ROCHE-1087331

PATIENT
  Sex: Male
  Weight: 62 kg

DRUGS (10)
  1. FLUOROURACIL [Concomitant]
     Indication: RECTAL CANCER RECURRENT
     Dosage: 3-4 TIMES ONCE PER WEEKS
     Route: 040
     Dates: start: 20100428
  2. AVASTIN [Suspect]
     Indication: RECTAL CANCER RECURRENT
     Dosage: 3-4 TIMES ONCE PER WEEKS
     Route: 041
     Dates: start: 20100428
  3. LEVOLEUCOVORIN CALCIUM [Concomitant]
     Indication: RECTAL CANCER RECURRENT
     Dosage: 3-4 TIMES ONCE PER WEEKS
     Route: 041
     Dates: start: 20100428
  4. IRINOTECAN HYDROCHLORIDE [Concomitant]
     Indication: RECTAL CANCER RECURRENT
     Dosage: 3-4 TIMES ONCE PER WEEKS
     Route: 041
     Dates: start: 20100428
  5. METFORMIN HYDROCHLORIDE [Concomitant]
     Route: 048
  6. FLUOROURACIL [Concomitant]
     Dosage: 3-4 TIMES ONCE/WEEKS
     Route: 041
     Dates: start: 20100428
  7. JANUVIA [Concomitant]
     Route: 048
  8. AMARYL [Concomitant]
     Dosage: 3MG IN MORNING AND 2MG IN EVENING
     Route: 048
  9. TEGRETOL [Concomitant]
     Route: 048
  10. EMEND [Concomitant]
     Dosage: DOSAGE IS UNCERTAIN.
     Route: 048
     Dates: start: 20120516

REACTIONS (2)
  - LOSS OF CONSCIOUSNESS [None]
  - EPILEPSY [None]
